FAERS Safety Report 24921357 (Version 1)
Quarter: 2025Q1

REPORT INFORMATION
  Report Type: Spontaneous
  Country: US (occurrence: US)
  Receive Date: 20250204
  Receipt Date: 20250204
  Transmission Date: 20250409
  Serious: No
  Sender: TARO
  Company Number: US-TARO PHARMACEUTICALS USA INC.-2025TAR00187

PATIENT

DRUGS (2)
  1. ADAPALENE [Suspect]
     Active Substance: ADAPALENE
     Indication: Acne
     Dosage: PEA SIZE, OD
     Route: 061
     Dates: start: 202410
  2. LYSINE [Concomitant]
     Active Substance: LYSINE
     Indication: Oral herpes
     Dosage: 1000 MG, OD, EVERY NIGHT
     Route: 065

REACTIONS (2)
  - Drug ineffective [Unknown]
  - Dry skin [Recovering/Resolving]

NARRATIVE: CASE EVENT DATE: 20240101
